FAERS Safety Report 19920154 (Version 1)
Quarter: 2021Q4

REPORT INFORMATION
  Report Type: Report from Study
  Country: CN (occurrence: CN)
  Receive Date: 20211005
  Receipt Date: 20211005
  Transmission Date: 20220303
  Serious: Yes (Hospitalization)
  Sender: FDA-Public Use
  Company Number: 2021A752255

PATIENT
  Age: 21663 Day
  Sex: Male

DRUGS (15)
  1. DURVALUMAB [Suspect]
     Active Substance: DURVALUMAB
     Indication: Small cell lung cancer extensive stage
     Route: 042
     Dates: start: 20210719, end: 20210719
  2. DURVALUMAB [Suspect]
     Active Substance: DURVALUMAB
     Indication: Small cell lung cancer extensive stage
     Route: 042
     Dates: start: 20210812, end: 20210812
  3. DURVALUMAB [Suspect]
     Active Substance: DURVALUMAB
     Indication: Small cell lung cancer extensive stage
     Route: 042
     Dates: start: 20210907, end: 20210907
  4. ETOPOSIDE [Suspect]
     Active Substance: ETOPOSIDE
     Indication: Small cell lung cancer extensive stage
     Dosage: 100.0MG/M2 ONCE/SINGLE ADMINISTRATION
     Route: 042
     Dates: start: 20210719, end: 20210719
  5. ETOPOSIDE [Suspect]
     Active Substance: ETOPOSIDE
     Indication: Small cell lung cancer extensive stage
     Dosage: 100.0MG/M2 ONCE/SINGLE ADMINISTRATION
     Route: 042
     Dates: start: 20210720, end: 20210720
  6. ETOPOSIDE [Suspect]
     Active Substance: ETOPOSIDE
     Indication: Small cell lung cancer extensive stage
     Dosage: 100.0MG/M2 ONCE/SINGLE ADMINISTRATION
     Route: 042
     Dates: start: 20210721, end: 20210721
  7. ETOPOSIDE [Suspect]
     Active Substance: ETOPOSIDE
     Indication: Small cell lung cancer extensive stage
     Dosage: 100.0MG/M2 ONCE/SINGLE ADMINISTRATION
     Route: 042
     Dates: start: 20210812, end: 20210812
  8. ETOPOSIDE [Suspect]
     Active Substance: ETOPOSIDE
     Indication: Small cell lung cancer extensive stage
     Dosage: 156.0MG/M2 ONCE/SINGLE ADMINISTRATION
     Route: 042
     Dates: start: 20210813, end: 20210813
  9. ETOPOSIDE [Suspect]
     Active Substance: ETOPOSIDE
     Indication: Small cell lung cancer extensive stage
     Dosage: 156.0MG/M2 ONCE/SINGLE ADMINISTRATION
     Route: 042
     Dates: start: 20210814, end: 20210814
  10. ETOPOSIDE [Suspect]
     Active Substance: ETOPOSIDE
     Indication: Small cell lung cancer extensive stage
     Dosage: 181.0MG/M2 ONCE/SINGLE ADMINISTRATION
     Route: 042
     Dates: start: 20210907, end: 20210907
  11. ETOPOSIDE [Suspect]
     Active Substance: ETOPOSIDE
     Indication: Small cell lung cancer extensive stage
     Dosage: 181.0MG/M2 ONCE/SINGLE ADMINISTRATION
     Route: 042
     Dates: start: 20210908, end: 20210908
  12. ETOPOSIDE [Suspect]
     Active Substance: ETOPOSIDE
     Indication: Small cell lung cancer extensive stage
     Dosage: 181.0MG/M2 ONCE/SINGLE ADMINISTRATION
     Route: 042
     Dates: start: 20210909, end: 20210909
  13. CARBOPLATIN [Suspect]
     Active Substance: CARBOPLATIN
     Indication: Small cell lung cancer extensive stage
     Dosage: 5 AUC EVERY THREE WEEKS
     Route: 042
     Dates: start: 20210719, end: 20210719
  14. CARBOPLATIN [Suspect]
     Active Substance: CARBOPLATIN
     Indication: Small cell lung cancer extensive stage
     Dosage: 5 AUC EVERY THREE WEEKS
     Route: 042
     Dates: start: 20210812, end: 20210812
  15. CARBOPLATIN [Suspect]
     Active Substance: CARBOPLATIN
     Indication: Small cell lung cancer extensive stage
     Dosage: 5 AUC EVERY THREE WEEKS
     Route: 042
     Dates: start: 20210907, end: 20210907

REACTIONS (1)
  - White blood cell count decreased [Not Recovered/Not Resolved]

NARRATIVE: CASE EVENT DATE: 20210927
